FAERS Safety Report 5306176-6 (Version None)
Quarter: 2007Q2

REPORT INFORMATION
  Report Type: 
  Country: None (occurrence: None)
  Receive Date: 20070424
  Receipt Date: 20070412
  Transmission Date: 20071010
  Serious: Yes (Hospitalization)
  Sender: FDA-Public Use
  Company Number: FR-SANOFI-SYNTHELABO-A02200700082

PATIENT
  Age: 84 Year
  Sex: Male

DRUGS (11)
  1. XATRAL [Suspect]
     Indication: DRUG USE FOR UNKNOWN INDICATION
     Route: 048
     Dates: end: 20061021
  2. IMODIUM [Concomitant]
     Dosage: UNK
     Route: 048
     Dates: end: 20061021
  3. CREON [Concomitant]
     Dosage: UNK
     Route: 048
     Dates: end: 20061021
  4. CORDARONE [Concomitant]
     Dosage: UNK
     Route: 048
     Dates: end: 20061021
  5. AMARYL [Concomitant]
     Dosage: UNK
     Route: 048
     Dates: end: 20061021
  6. MINISINTROM [Concomitant]
     Dosage: UNK
     Route: 048
     Dates: end: 20061021
  7. NISIS [Suspect]
     Indication: HYPERTENSION
     Route: 048
     Dates: end: 20061021
  8. ALDALIX [Suspect]
     Indication: HYPERTENSION
     Route: 048
     Dates: end: 20061021
  9. AMLOR [Suspect]
     Indication: HYPERTENSION
     Route: 048
     Dates: end: 20061021
  10. TEMESTA [Suspect]
     Indication: ANXIETY
     Route: 048
     Dates: end: 20061021
  11. LASIX [Suspect]
     Indication: HYPERTENSION
     Route: 048
     Dates: end: 20061021

REACTIONS (2)
  - HYPONATRAEMIA [None]
  - ORTHOSTATIC HYPOTENSION [None]
